FAERS Safety Report 5143145-3 (Version None)
Quarter: 2006Q4

REPORT INFORMATION
  Report Type: 
  Country: None (occurrence: None)
  Receive Date: 20061103
  Receipt Date: 20061024
  Transmission Date: 20070319
  Serious: Yes (Hospitalization, Other)
  Sender: FDA-Public Use
  Company Number: US-AVENTIS-200618930US

PATIENT
  Age: 30 Year
  Sex: Female
  Weight: 56 kg

DRUGS (8)
  1. LOVENOX [Suspect]
     Indication: THROMBOSIS PROPHYLAXIS
     Route: 058
  2. LOVENOX [Suspect]
     Route: 058
  3. LOVENOX [Suspect]
     Route: 058
  4. LOVENOX [Suspect]
     Route: 058
  5. LOVENOX [Suspect]
     Route: 058
  6. UNFRACTIONATED HEPARIN [Concomitant]
     Indication: ANTICOAGULANT THERAPY
     Route: 058
  7. DIGOXIN [Concomitant]
     Route: 048
  8. WARFARIN SODIUM [Concomitant]
     Dosage: DOSE: UNK

REACTIONS (9)
  - APGAR SCORE LOW [None]
  - CAESAREAN SECTION [None]
  - DRUG EXPOSURE DURING PREGNANCY [None]
  - HAEMOGLOBIN DECREASED [None]
  - INCORRECT DOSE ADMINISTERED [None]
  - OPERATIVE HAEMORRHAGE [None]
  - OVERDOSE [None]
  - PREMATURE LABOUR [None]
  - UTERINE HAEMATOMA [None]
